FAERS Safety Report 20590208 (Version 2)
Quarter: 2022Q2

REPORT INFORMATION
  Report Type: Spontaneous
  Country: FI (occurrence: FI)
  Receive Date: 20220314
  Receipt Date: 20220419
  Transmission Date: 20220721
  Serious: Yes (Other)
  Sender: FDA-Public Use
  Company Number: FI-NAPPMUNDI-GBR-2022-0095713

PATIENT
  Age: 20 Year
  Sex: Male

DRUGS (2)
  1. BUPRENORPHINE [Interacting]
     Active Substance: BUPRENORPHINE
     Indication: Product used for unknown indication
     Dosage: UNK
     Route: 042
  2. CLONAZEPAM [Interacting]
     Active Substance: CLONAZEPAM
     Indication: Product used for unknown indication
     Dosage: UNK
     Route: 065

REACTIONS (13)
  - Substance abuse [Unknown]
  - Myelopathy [Unknown]
  - Rhabdomyolysis [Unknown]
  - Compartment syndrome [Unknown]
  - Quadriparesis [Not Recovered/Not Resolved]
  - Drug interaction [Unknown]
  - Somnolence [Unknown]
  - Muscular weakness [Unknown]
  - Blood creatine phosphokinase increased [Unknown]
  - CSF protein increased [Unknown]
  - CSF white blood cell count increased [Unknown]
  - Muscle rigidity [Unknown]
  - Gait disturbance [Unknown]
